FAERS Safety Report 5963479-X (Version None)
Quarter: 2008Q4

REPORT INFORMATION
  Report Type: 
  Country: None (occurrence: None)
  Receive Date: 20081121
  Receipt Date: 20081121
  Transmission Date: 20090506
  Serious: Yes (Life-Threatening)
  Sender: FDA-Public Use
  Company Number: None

PATIENT
  Sex: Female
  Weight: 47.4 kg

DRUGS (8)
  1. OXALIPLATIN [Suspect]
     Indication: COLON CANCER STAGE IV
     Dosage: 130MG/M2 IV EVERY 3 WEEKS
     Route: 042
     Dates: start: 20080601
  2. OXALIPLATIN [Suspect]
     Indication: COLON CANCER STAGE IV
     Dosage: 130MG/M2 IV EVERY 3 WEEKS
     Route: 042
     Dates: start: 20080728
  3. OXALIPLATIN [Suspect]
     Indication: COLON CANCER STAGE IV
     Dosage: 130MG/M2 IV EVERY 3 WEEKS
     Route: 042
     Dates: start: 20080818
  4. ADVIL [Concomitant]
  5. FLAGYL [Concomitant]
  6. LOMOTIL [Concomitant]
  7. PROCHLORPERAZINE [Concomitant]
  8. ZOFRAN [Concomitant]

REACTIONS (7)
  - EYE PRURITUS [None]
  - EYE SWELLING [None]
  - EYELID DISORDER [None]
  - HYPOAESTHESIA [None]
  - SPEECH DISORDER [None]
  - THROAT IRRITATION [None]
  - THROAT TIGHTNESS [None]
